FAERS Safety Report 7647914-7 (Version None)
Quarter: 2011Q3

REPORT INFORMATION
  Report Type: 
  Country: None (occurrence: None)
  Receive Date: 20110801
  Receipt Date: 20091031
  Transmission Date: 20111222
  Serious: Yes (Other)
  Sender: FDA-Public Use
  Company Number: US-BAYER-200937872NA

PATIENT
  Age: 12 Year
  Sex: Male
  Weight: 53 kg

DRUGS (13)
  1. ONDASETRON [Concomitant]
     Dosage: 4 MG, UNK
     Route: 042
     Dates: start: 20041116, end: 20041116
  2. HYDRALAZINE HCL [Concomitant]
     Dosage: 10 MG, UNK
     Route: 042
     Dates: start: 20041116, end: 20041116
  3. CONCERTA [Concomitant]
     Indication: ATTENTION DEFICIT/HYPERACTIVITY DISORDER
     Dosage: 18 MG, UNK
     Route: 048
     Dates: start: 20020101
  4. HEPARIN [Concomitant]
     Dosage: 17000 U, UNK
     Route: 042
     Dates: start: 20041116, end: 20041116
  5. TRASYLOL [Suspect]
     Dosage: 197 ML, LOADING DOSE
     Route: 042
     Dates: start: 20041116, end: 20041116
  6. TRASYLOL [Suspect]
     Dosage: 100 ML CARDIOPULMONARY BYPASS
     Route: 042
     Dates: start: 20041116, end: 20041116
  7. PROTAMINE [Concomitant]
     Dosage: 330 MG, UNK
     Route: 042
     Dates: start: 20041116, end: 20041116
  8. KETOROLAC TROMETHAMINE [Concomitant]
     Dosage: 30 MG, UNK
     Route: 042
     Dates: start: 20041116, end: 20041116
  9. FENTANYL [Concomitant]
     Dosage: 200 ?G, UNK
     Route: 042
     Dates: start: 20041116, end: 20041116
  10. LABETALOL HCL [Concomitant]
     Dosage: 30 MG, UNK
     Route: 042
     Dates: start: 20041116, end: 20041116
  11. TRASYLOL [Suspect]
     Indication: ARTERIAL REPAIR
     Dosage: 3 ML, TEST DOSE
     Route: 042
     Dates: start: 20041116, end: 20041116
  12. VERSED [Concomitant]
     Dosage: 3 MG, UNK
     Route: 042
     Dates: start: 20041116, end: 20041116
  13. TRASYLOL [Suspect]
     Dosage: 50 ML/HR, INFUSION DOSE
     Route: 042
     Dates: start: 20041116, end: 20041116

REACTIONS (11)
  - STRESS [None]
  - UNEVALUABLE EVENT [None]
  - FEAR [None]
  - PAIN [None]
  - INJURY [None]
  - RENAL INJURY [None]
  - EMOTIONAL DISTRESS [None]
  - RENAL IMPAIRMENT [None]
  - RENAL FAILURE [None]
  - MULTI-ORGAN FAILURE [None]
  - ANXIETY [None]
